FAERS Safety Report 4718701-4 (Version None)
Quarter: 2005Q3

REPORT INFORMATION
  Report Type: 
  Country: None (occurrence: None)
  Receive Date: 20050719
  Receipt Date: 20050705
  Transmission Date: 20060218
  Serious: Yes (Hospitalization, Other)
  Sender: FDA-Public Use
  Company Number: 215711

PATIENT
  Age: 70 Year
  Sex: Male
  Weight: 102 kg

DRUGS (11)
  1. RITUXIMAB (RITUXIMAB) CONC FOR SOLUTION FOR INFUSION [Suspect]
     Indication: CENTRAL NERVOUS SYSTEM LYMPHOMA
     Dosage: 750 MG, INTRAVENOUS
     Route: 042
     Dates: start: 20031226, end: 20031226
  2. METHOTREXATE [Suspect]
     Indication: CENTRAL NERVOUS SYSTEM LYMPHOMA
     Dosage: 7 G, INTRAVENOUS
     Route: 042
     Dates: start: 20031229, end: 20031229
  3. TEMOZOLOMIDE (TEMOZOLOMIDE) [Suspect]
     Indication: CENTRAL NERVOUS SYSTEM LYMPHOMA
  4. LEUCOVORIN CALCIUM [Concomitant]
  5. HYZAAR [Concomitant]
  6. DECADRON [Concomitant]
  7. DILANTIN [Concomitant]
  8. ACYCLOVIR [Concomitant]
  9. BACTRIM DS [Concomitant]
  10. COMPAZINE [Concomitant]
  11. HYDROCODONE BITARTRATE [Concomitant]

REACTIONS (5)
  - DIALYSIS [None]
  - DRUG TOXICITY [None]
  - FEBRILE NEUTROPENIA [None]
  - PANCYTOPENIA [None]
  - RENAL FAILURE ACUTE [None]
